FAERS Safety Report 8619647-1 (Version None)
Quarter: 2012Q3

REPORT INFORMATION
  Report Type: 
  Country: None (occurrence: None)
  Receive Date: 20120824
  Receipt Date: 20120807
  Transmission Date: 20120928
  Serious: No
  Sender: FDA-Public Use
  Company Number: US-009507513-2012SP032520

PATIENT

DRUGS (3)
  1. PEG-INTRON [Suspect]
     Indication: HEPATITIS C
     Dosage: 80 ?G, QW
     Route: 058
     Dates: start: 20120427
  2. RIBASPHERE [Suspect]
     Indication: PRODUCT USED FOR UNKNOWN INDICATION
     Dosage: UNK
     Dates: start: 20120427
  3. PROGRAF [Concomitant]
     Indication: LIVER TRANSPLANT

REACTIONS (12)
  - FATIGUE [None]
  - DECREASED APPETITE [None]
  - TINNITUS [None]
  - ABDOMINAL PAIN [None]
  - PAIN [None]
  - DEPRESSION [None]
  - WHITE BLOOD CELL COUNT DECREASED [None]
  - CHILLS [None]
  - CONFUSIONAL STATE [None]
  - DIARRHOEA [None]
  - HOT FLUSH [None]
  - ANAEMIA [None]
